FAERS Safety Report 4695168-6 (Version None)
Quarter: 2005Q2

REPORT INFORMATION
  Report Type: 
  Country: None (occurrence: None)
  Receive Date: 20050617
  Receipt Date: 20050608
  Transmission Date: 20051028
  Serious: Yes (Hospitalization)
  Sender: FDA-Public Use
  Company Number: HQWYE015414APR05

PATIENT
  Age: 49 Year
  Sex: Male

DRUGS (14)
  1. RAPAMUNE [Suspect]
     Indication: IMMUNOSUPPRESSANT DRUG THERAPY
     Dosage: SEE IMAGE, ORAL
     Route: 048
     Dates: start: 20050307, end: 20050307
  2. RAPAMUNE [Suspect]
     Indication: PROPHYLAXIS AGAINST TRANSPLANT REJECTION
     Dosage: SEE IMAGE, ORAL
     Route: 048
     Dates: start: 20050307, end: 20050307
  3. RAPAMUNE [Suspect]
     Indication: IMMUNOSUPPRESSANT DRUG THERAPY
     Dosage: SEE IMAGE, ORAL
     Route: 048
     Dates: start: 20050308, end: 20050322
  4. RAPAMUNE [Suspect]
     Indication: PROPHYLAXIS AGAINST TRANSPLANT REJECTION
     Dosage: SEE IMAGE, ORAL
     Route: 048
     Dates: start: 20050308, end: 20050322
  5. RAPAMUNE [Suspect]
     Indication: IMMUNOSUPPRESSANT DRUG THERAPY
     Dosage: SEE IMAGE, ORAL
     Route: 048
     Dates: start: 20050323, end: 20050428
  6. RAPAMUNE [Suspect]
     Indication: PROPHYLAXIS AGAINST TRANSPLANT REJECTION
     Dosage: SEE IMAGE, ORAL
     Route: 048
     Dates: start: 20050323, end: 20050428
  7. RAPAMUNE [Suspect]
     Indication: IMMUNOSUPPRESSANT DRUG THERAPY
     Dosage: SEE IMAGE, ORAL
     Route: 048
     Dates: start: 20050502
  8. RAPAMUNE [Suspect]
     Indication: PROPHYLAXIS AGAINST TRANSPLANT REJECTION
     Dosage: SEE IMAGE, ORAL
     Route: 048
     Dates: start: 20050502
  9. CYCLOSPORINE [Concomitant]
  10. PREDNISONE (PREDNISONE) [Concomitant]
  11. NIFEDIPINE [Concomitant]
  12. SULFAMETHOXAZOLE + TRIMETHOPRIM [Concomitant]
  13. OMEPRAZOLE [Concomitant]
  14. ASPIRIN [Concomitant]

REACTIONS (8)
  - COMPLICATIONS OF TRANSPLANTED KIDNEY [None]
  - HAEMATOCRIT DECREASED [None]
  - HAEMOGLOBIN DECREASED [None]
  - LUNG CONSOLIDATION [None]
  - PLATELET COUNT DECREASED [None]
  - PNEUMONIA ESCHERICHIA [None]
  - RENAL INTERSTITIAL FIBROSIS [None]
  - URINE OUTPUT DECREASED [None]
